FAERS Safety Report 16933095 (Version 2)
Quarter: 2025Q3

REPORT INFORMATION
  Report Type: Spontaneous
  Country: US (occurrence: US)
  Receive Date: 20191018
  Receipt Date: 20250709
  Transmission Date: 20251020
  Serious: Yes (Hospitalization, Other)
  Sender: AUROBINDO
  Company Number: US-AUROBINDO-AUR-APL-2019-066130

PATIENT
  Age: 39 Year
  Sex: Male

DRUGS (5)
  1. DEXMEDETOMIDINE [Suspect]
     Active Substance: DEXMEDETOMIDINE
     Indication: Agitation
     Route: 065
  2. FENTANYL [Suspect]
     Active Substance: FENTANYL
     Indication: Agitation
     Route: 065
  3. MIDAZOLAM [Suspect]
     Active Substance: MIDAZOLAM
     Indication: Agitation
     Route: 065
  4. PROPOFOL [Suspect]
     Active Substance: PROPOFOL
     Indication: Agitation
     Route: 065
  5. KETAMINE [Concomitant]
     Active Substance: KETAMINE
     Indication: Agitation
     Route: 065

REACTIONS (5)
  - Agitation [Recovered/Resolved]
  - Aggression [Recovered/Resolved]
  - Delirium [Recovered/Resolved]
  - Tachypnoea [Unknown]
  - Drug withdrawal syndrome [Recovered/Resolved]
